FAERS Safety Report 4752200-9 (Version None)
Quarter: 2005Q3

REPORT INFORMATION
  Report Type: 
  Country: None (occurrence: None)
  Receive Date: 20050825
  Receipt Date: 20050805
  Transmission Date: 20060218
  Serious: Yes (Hospitalization, Other)
  Sender: FDA-Public Use
  Company Number: 2005PK01467

PATIENT
  Age: 22501 Day
  Sex: Female
  Weight: 67 kg

DRUGS (1)
  1. NOLVADEX [Suspect]
     Indication: BREAST CANCER
     Route: 048
     Dates: start: 20030320

REACTIONS (3)
  - BREAST MICROCALCIFICATION [None]
  - OVARIAN CYST [None]
  - OVARIAN FIBROMA [None]
